FAERS Safety Report 9787995 (Version 1)
Quarter: 2013Q4

REPORT INFORMATION
  Report Type: Spontaneous
  Country: US (occurrence: None)
  Receive Date: 20131227
  Receipt Date: 20131227
  Transmission Date: 20140711
  Serious: Yes (Disabling, Other)
  Sender: FDA-Public Use
  Company Number: None

PATIENT
  Age: 58 Year
  Sex: Male
  Weight: 99.79 kg

DRUGS (2)
  1. ROBITUSSIN [Suspect]
     Indication: COUGH
     Dates: start: 20131224, end: 20131224
  2. ROBITUSSIN [Suspect]
     Indication: NASOPHARYNGITIS
     Dates: start: 20131224, end: 20131224

REACTIONS (1)
  - Vision blurred [None]
